FAERS Safety Report 10189949 (Version 1)
Quarter: 2014Q2

REPORT INFORMATION
  Report Type: Spontaneous
  Country: JP (occurrence: JP)
  Receive Date: 20140522
  Receipt Date: 20140522
  Transmission Date: 20141212
  Serious: Yes (Hospitalization)
  Sender: FDA-Public Use
  Company Number: PHHY2014JP059517

PATIENT
  Age: 35 Year
  Sex: Female

DRUGS (4)
  1. METHYLPREDNISOLONE [Suspect]
     Indication: ACUTE GRAFT VERSUS HOST DISEASE
     Dosage: 16 MG, PER DAY
     Dates: start: 201010
  2. METHYLPREDNISOLONE [Suspect]
     Indication: PNEUMOCYSTIS JIROVECII PNEUMONIA
  3. TACROLIMUS [Suspect]
     Indication: ACUTE GRAFT VERSUS HOST DISEASE
     Dosage: 5 MG, PER DAY
     Dates: start: 201010
  4. TACROLIMUS [Suspect]
     Indication: PNEUMOCYSTIS JIROVECII PNEUMONIA

REACTIONS (9)
  - Progressive multifocal leukoencephalopathy [Recovered/Resolved]
  - Brain oedema [Recovered/Resolved]
  - White matter lesion [Recovered/Resolved]
  - Brain midline shift [Recovered/Resolved]
  - Convulsion [Recovered/Resolved]
  - Cognitive disorder [Recovered/Resolved]
  - Disturbance in attention [Recovered/Resolved]
  - Abulia [Recovered/Resolved]
  - Disorientation [Recovered/Resolved]
